FAERS Safety Report 20262767 (Version 4)
Quarter: 2022Q1

REPORT INFORMATION
  Report Type: Spontaneous
  Country: US (occurrence: US)
  Receive Date: 20211231
  Receipt Date: 20220120
  Transmission Date: 20220423
  Serious: Yes (Other)
  Sender: FDA-Public Use
  Company Number: US-ORGANON-O2112USA002767

PATIENT
  Sex: Female

DRUGS (1)
  1. NEXPLANON [Suspect]
     Active Substance: ETONOGESTREL
     Indication: Contraception
     Dosage: 1 IMPLANT, LEFT UPPER ARM
     Route: 059
     Dates: start: 20191009, end: 20211221

REACTIONS (5)
  - Abortion spontaneous [Unknown]
  - Pregnancy with implant contraceptive [Recovered/Resolved]
  - Vaginal haemorrhage [Unknown]
  - Unintended pregnancy [Recovered/Resolved]
  - Abdominal pain [Unknown]

NARRATIVE: CASE EVENT DATE: 20210101
